FAERS Safety Report 10167516 (Version 1)
Quarter: 2014Q2

REPORT INFORMATION
  Report Type: Spontaneous
  Country: US (occurrence: None)
  Receive Date: 20140509
  Receipt Date: 20140509
  Transmission Date: 20141212
  Serious: Yes (Other)
  Sender: FDA-Public Use
  Company Number: None

PATIENT
  Age: 44 Year
  Sex: Female
  Weight: 53.98 kg

DRUGS (1)
  1. ESCITALOPRAM [Suspect]
     Dosage: HAD USED BRAND LEXAPRO IN PAST
     Route: 048
     Dates: start: 20140109

REACTIONS (2)
  - Headache [None]
  - Product substitution issue [None]
